FAERS Safety Report 7646692 (Version 4)
Quarter: 2015Q4

REPORT INFORMATION
  Report Type: Spontaneous
  Country: US (occurrence: US)
  Receive Date: 20101029
  Receipt Date: 20151124
  Transmission Date: 20160305
  Serious: Yes (Hospitalization, Other)
  Sender: FDA-Public Use
  Company Number: US-BAYER-201038678NA

PATIENT
  Age: 30 Year
  Sex: Female
  Weight: 52 kg

DRUGS (2)
  1. YASMIN [Suspect]
     Active Substance: DROSPIRENONE\ETHINYL ESTRADIOL
     Indication: CONTRACEPTION
     Dosage: UNK
     Route: 048
     Dates: start: 2004, end: 200811
  2. ALBUTEROL. [Concomitant]
     Active Substance: ALBUTEROL
     Dosage: UNK
     Dates: start: 200811

REACTIONS (6)
  - Emotional distress [None]
  - Pain [Unknown]
  - Injury [None]
  - Transient ischaemic attack [Unknown]
  - Transient ischaemic attack [Unknown]
  - Embolism arterial [None]

NARRATIVE: CASE EVENT DATE: 20080821
